FAERS Safety Report 10411771 (Version 1)
Quarter: 2014Q3

REPORT INFORMATION
  Report Type: Spontaneous
  Country: US (occurrence: US)
  Receive Date: 20140827
  Receipt Date: 20140827
  Transmission Date: 20150326
  Serious: No
  Sender: FDA-Public Use
  Company Number: US-DRREDDYS-USA/USA/14/0041484

PATIENT
  Sex: Female

DRUGS (1)
  1. IBUPROFEN AND DIPHENHYDRAMINE OTC [Suspect]
     Active Substance: DIPHENHYDRAMINE\IBUPROFEN
     Indication: SLEEP DISORDER
     Route: 048
     Dates: start: 20140623, end: 20140623

REACTIONS (3)
  - Expired product administered [Unknown]
  - Extra dose administered [Unknown]
  - Somnolence [Unknown]

NARRATIVE: CASE EVENT DATE: 20140623
